FAERS Safety Report 20964944 (Version 1)
Quarter: 2022Q2

REPORT INFORMATION
  Report Type: Spontaneous
  Country: NL (occurrence: NL)
  Receive Date: 20220616
  Receipt Date: 20220616
  Transmission Date: 20220721
  Serious: Yes (Hospitalization)
  Sender: FDA-Public Use
  Company Number: NL-LRB-00811911

PATIENT
  Age: 46 Year
  Sex: Male
  Weight: 97 kg

DRUGS (2)
  1. AMOXICILLIN [Suspect]
     Active Substance: AMOXICILLIN
     Indication: Endodontic procedure
     Dosage: 1 DOSAGE FORM, 3 TIMES A DAY (TABLET OF BOTH)
     Route: 065
     Dates: start: 20220511, end: 20220517
  2. METRONIDAZOLE [Suspect]
     Active Substance: METRONIDAZOLE
     Indication: Endodontic procedure
     Dosage: 1 DOSAGE FORM, EVERY 8 MINUTE (3 TIMES DAILY TABLET OF BOTH)
     Route: 065
     Dates: start: 20220511, end: 20220517

REACTIONS (4)
  - Purpura [Recovering/Resolving]
  - Erythema [Recovering/Resolving]
  - Pruritus [Recovering/Resolving]
  - Pyrexia [Recovered/Resolved]

NARRATIVE: CASE EVENT DATE: 20220517
